FAERS Safety Report 9504276 (Version 4)
Quarter: 2014Q1

REPORT INFORMATION
  Report Type: Report from Study
  Country: US (occurrence: US)
  Receive Date: 20130906
  Receipt Date: 20140213
  Transmission Date: 20141002
  Serious: Yes (Hospitalization)
  Sender: FDA-Public Use
  Company Number: US-US-EMD SERONO, INC.-7234857

PATIENT
  Sex: Female

DRUGS (8)
  1. REBIF [Suspect]
     Indication: PRODUCT USED FOR UNKNOWN INDICATION
     Route: 058
     Dates: start: 20121023, end: 201308
  2. REBIF [Suspect]
     Route: 058
  3. ADVIL                              /00109201/ [Concomitant]
     Indication: PREMEDICATION
  4. PENICILLIN V POTASSIUM [Concomitant]
     Indication: PRODUCT USED FOR UNKNOWN INDICATION
  5. VITAMIN D                          /00107901/ [Concomitant]
     Indication: PRODUCT USED FOR UNKNOWN INDICATION
  6. LUNESTA [Concomitant]
     Indication: PRODUCT USED FOR UNKNOWN INDICATION
  7. NAMENDA [Concomitant]
     Indication: PRODUCT USED FOR UNKNOWN INDICATION
  8. BUPROPION HYDROCHLORIDE [Concomitant]
     Indication: PRODUCT USED FOR UNKNOWN INDICATION

REACTIONS (6)
  - Sepsis [Recovering/Resolving]
  - Urinary tract infection [Recovering/Resolving]
  - Speech disorder [Unknown]
  - Thinking abnormal [Unknown]
  - Bedridden [Unknown]
  - Influenza like illness [Unknown]
